FAERS Safety Report 6437990-1 (Version None)
Quarter: 2009Q4

REPORT INFORMATION
  Report Type: 
  Country: None (occurrence: None)
  Receive Date: 20091112
  Receipt Date: 20091103
  Transmission Date: 20100525
  Serious: Yes (Other)
  Sender: FDA-Public Use
  Company Number: GXKR2009IT12079

PATIENT
  Age: 35 Year
  Sex: Female

DRUGS (3)
  1. VALPROIC ACID (NGX) [Suspect]
     Indication: EPILEPSY
     Dosage: 500 MG, BID (52 UG/ML)
     Route: 065
  2. POLIGLUSAM [Interacting]
     Indication: WEIGHT CONTROL
     Dosage: 500 MG, BID
     Route: 065
  3. PHENOBARBITAL [Concomitant]
     Dosage: 75 MG/DAY

REACTIONS (4)
  - DRUG INTERACTION [None]
  - GRAND MAL CONVULSION [None]
  - MYOCLONUS [None]
  - PETIT MAL EPILEPSY [None]
